FAERS Safety Report 6529180-9 (Version None)
Quarter: 2009Q4

REPORT INFORMATION
  Report Type: 
  Country: None (occurrence: None)
  Receive Date: 20091231
  Receipt Date: 20091217
  Transmission Date: 20100525
  Serious: Yes (Hospitalization)
  Sender: FDA-Public Use
  Company Number: 2009AL007925

PATIENT
  Age: 23 Year
  Sex: Male

DRUGS (2)
  1. FEVERALL [Suspect]
  2. DENZAPINE [Concomitant]

REACTIONS (1)
  - OVERDOSE [None]
